FAERS Safety Report 6209196-2 (Version None)
Quarter: 2009Q2

REPORT INFORMATION
  Report Type: 
  Country: None (occurrence: None)
  Receive Date: 20090529
  Receipt Date: 20090518
  Transmission Date: 20091009
  Serious: Yes (Other)
  Sender: FDA-Public Use
  Company Number: JP-BRISTOL-MYERS SQUIBB COMPANY-14464549

PATIENT
  Age: 48 Year
  Sex: Male
  Weight: 60 kg

DRUGS (12)
  1. ABILIFY [Suspect]
     Indication: SCHIZOPHRENIA
     Dosage: 28JU-04JUL,3MG/D;05JU-08AU,24MG/D;9-22AU,12MG/D;23AU-5SE,6MG;6SE-10NO,30MG/D;11-22NO,12MG;23NOV-3FEB
     Route: 048
     Dates: start: 20080628, end: 20090203
  2. ZOTEPINE [Concomitant]
     Dosage: 300MG/D,400MG/D,22NOV08
     Dates: start: 20081106, end: 20081123
  3. BIPERIDEN HYDROCHLORIDE TAB [Concomitant]
     Dates: start: 20080301, end: 20081103
  4. CONTOMIN [Concomitant]
     Dates: start: 20070126
  5. URSO 250 [Concomitant]
     Dates: start: 20080216
  6. MAGMITT [Concomitant]
     Dates: start: 20080305
  7. DEPAKENE [Concomitant]
     Dates: start: 20080312, end: 20081110
  8. SENNOSIDE [Concomitant]
     Dates: start: 20080319
  9. LACTULOSE (GEN) SYRUP [Concomitant]
     Dates: start: 20080320
  10. HIBERNA [Concomitant]
     Dates: start: 20081113
  11. VALERIN [Concomitant]
     Dosage: 11NOV08-28APR09,18FEB09-900MG/D,28FEB09-750MG/D
     Dates: start: 20081111
  12. FOLIAMIN [Concomitant]
     Dates: start: 20090115

REACTIONS (4)
  - DELUSION [None]
  - HALLUCINATION [None]
  - INSOMNIA [None]
  - PLATELET COUNT DECREASED [None]
